FAERS Safety Report 5797208-X (Version None)
Quarter: 2008Q3

REPORT INFORMATION
  Report Type: 
  Country: None (occurrence: None)
  Receive Date: 20080701
  Receipt Date: 20080623
  Transmission Date: 20090109
  Serious: Yes (Hospitalization, Disabling, Other)
  Sender: FDA-Public Use
  Company Number: US-PFIZER INC-2008033973

PATIENT
  Sex: Female

DRUGS (2)
  1. BEXTRA [Suspect]
     Indication: PAIN IN EXTREMITY
  2. BEXTRA [Suspect]
     Indication: ARTHRALGIA

REACTIONS (2)
  - CARDIOMEGALY [None]
  - MYOCARDIAL INFARCTION [None]
